FAERS Safety Report 10528180 (Version 3)
Quarter: 2015Q2

REPORT INFORMATION
  Report Type: Spontaneous
  Country: JP (occurrence: JP)
  Receive Date: 20141020
  Receipt Date: 20150521
  Transmission Date: 20150821
  Serious: Yes (Other)
  Sender: FDA-Public Use
  Company Number: JP-PFIZER INC-2014246416

PATIENT
  Age: 76 Year
  Sex: Female
  Weight: 47 kg

DRUGS (5)
  1. CHAMPIX [Suspect]
     Active Substance: VARENICLINE TARTRATE
     Dosage: 0.5 MG, 1X/DAY
     Route: 048
     Dates: start: 20130326, end: 20130328
  2. CHAMPIX [Suspect]
     Active Substance: VARENICLINE TARTRATE
     Dosage: 0.5 MG, 2X/DAY
     Route: 048
     Dates: start: 20130329, end: 20130401
  3. CHAMPIX [Suspect]
     Active Substance: VARENICLINE TARTRATE
     Dosage: 1.0 MG, 2X/DAY
     Route: 048
     Dates: start: 20130402, end: 20130408
  4. CHAMPIX [Suspect]
     Active Substance: VARENICLINE TARTRATE
     Dosage: 0.5 MG, 2X/DAY
     Route: 048
     Dates: start: 20130409, end: 20130414
  5. CHAMPIX [Suspect]
     Active Substance: VARENICLINE TARTRATE
     Dosage: 0.5 MG, 1X/DAY
     Route: 048
     Dates: start: 20130415, end: 20130515

REACTIONS (9)
  - Insomnia [Unknown]
  - Depression [Recovered/Resolved]
  - Compulsive shopping [Recovered/Resolved]
  - Homicidal ideation [Recovered/Resolved]
  - Eye pain [Unknown]
  - Psychiatric symptom [Recovered/Resolved]
  - Stress [Recovered/Resolved]
  - Hallucination [Recovered/Resolved]
  - Gastroduodenal ulcer [Recovered/Resolved]

NARRATIVE: CASE EVENT DATE: 20130406
